FAERS Safety Report 21746900 (Version 1)
Quarter: 2022Q4

REPORT INFORMATION
  Report Type: Spontaneous
  Country: IN (occurrence: IN)
  Receive Date: 20221219
  Receipt Date: 20221219
  Transmission Date: 20230113
  Serious: Yes (Other)
  Sender: FDA-Public Use
  Company Number: IN-Accord-259526

PATIENT
  Age: 23 Year
  Sex: Female

DRUGS (1)
  1. METHOTREXATE [Suspect]
     Active Substance: METHOTREXATE
     Indication: Psoriasis
     Dosage: 7.5 MG/WEEK AND (10MG/WEEK, CUMULATIVE METHOTREXATE DOSE, 630 MG)

REACTIONS (2)
  - Acarodermatitis [Recovered/Resolved]
  - Disease recurrence [Recovered/Resolved]
